FAERS Safety Report 15026832 (Version 1)
Quarter: 2018Q2

REPORT INFORMATION
  Report Type: Report from Study
  Country: ES (occurrence: ES)
  Receive Date: 20180619
  Receipt Date: 20180619
  Transmission Date: 20180711
  Serious: Yes (Death)
  Sender: FDA-Public Use
  Company Number: ES-TEVA-2018-ES-908835

PATIENT
  Age: 75 Year
  Sex: Female

DRUGS (1)
  1. METOTREXATO (418A) [Suspect]
     Active Substance: METHOTREXATE
     Indication: RHEUMATOID ARTHRITIS
     Dosage: 3 TABLETS OF 2.5 MG PER WEEK
     Dates: start: 20170901, end: 20170914

REACTIONS (1)
  - Pancytopenia [Fatal]

NARRATIVE: CASE EVENT DATE: 20170906
